FAERS Safety Report 13879460 (Version 1)
Quarter: 2017Q3

REPORT INFORMATION
  Report Type: Spontaneous
  Country: US (occurrence: US)
  Receive Date: 20170817
  Receipt Date: 20170817
  Transmission Date: 20171127
  Serious: No
  Sender: FDA-Public Use
  Company Number: US-ENDO PHARMACEUTICALS INC-2016-007233

PATIENT
  Age: 36 Year
  Sex: Female
  Weight: 72.64 kg

DRUGS (1)
  1. SUMAVEL DOSEPRO [Suspect]
     Active Substance: SUMATRIPTAN SUCCINATE
     Indication: MIGRAINE
     Dosage: INJECT AS NEEDED, MAX 2 INJECTIONS PER DAY AND 3 TIMES PER WEEK IN THIGH
     Route: 065
     Dates: start: 201506

REACTIONS (5)
  - Device malfunction [Recovered/Resolved]
  - Injection site pain [Unknown]
  - Drug ineffective [Unknown]
  - Injection site haemorrhage [Unknown]
  - Injection site urticaria [Unknown]

NARRATIVE: CASE EVENT DATE: 201507
